FAERS Safety Report 10062810 (Version 2)
Quarter: 2014Q2

REPORT INFORMATION
  Report Type: Spontaneous
  Country: US (occurrence: US)
  Receive Date: 20140407
  Receipt Date: 20140407
  Transmission Date: 20141212
  Serious: No
  Sender: FDA-Public Use
  Company Number: US-PFIZER INC-2014048092

PATIENT
  Age: 71 Year
  Sex: Female

DRUGS (1)
  1. ZOLOFT [Suspect]
     Indication: MANIA
     Dosage: UNK

REACTIONS (3)
  - Off label use [Unknown]
  - Therapeutic response changed [Unknown]
  - Pre-existing condition improved [Unknown]
